FAERS Safety Report 8572463-1 (Version None)
Quarter: 2012Q2

REPORT INFORMATION
  Report Type: 
  Country: None (occurrence: None)
  Receive Date: 20120419
  Receipt Date: 20120419
  Transmission Date: 20120825
  Serious: Yes (Other)
  Sender: FDA-Public Use
  Company Number: ALL1-2011-01784

PATIENT
  Age: 17 Year
  Sex: Male

DRUGS (2)
  1. LIALDA [Suspect]
     Indication: CROHN'S DISEASE
     Dosage: 2.4 G, 1X/DAY:QD,ORAL, 4.8G 1XD ORAL
     Route: 048
     Dates: start: 20110401, end: 20110504
  2. LIALDA [Suspect]
     Indication: CROHN'S DISEASE
     Dosage: 2.4 G, 1X/DAY:QD,ORAL, 4.8G 1XD ORAL
     Route: 048
     Dates: start: 20110505, end: 20110505

REACTIONS (8)
  - PNEUMONITIS [None]
  - DYSPNOEA [None]
  - PYREXIA [None]
  - OFF LABEL USE [None]
  - COUGH [None]
  - BLOOD PRESSURE DECREASED [None]
  - HEART RATE INCREASED [None]
  - EOSINOPHIL COUNT INCREASED [None]
